FAERS Safety Report 8435323-2 (Version None)
Quarter: 2012Q2

REPORT INFORMATION
  Report Type: 
  Country: None (occurrence: None)
  Receive Date: 20120614
  Receipt Date: 20120607
  Transmission Date: 20120825
  Serious: No
  Sender: FDA-Public Use
  Company Number: US-PFIZER INC-2012137625

PATIENT
  Age: 65 Year
  Sex: Female

DRUGS (2)
  1. ZYVOX [Suspect]
     Indication: SKIN INFECTION
     Dosage: 600 MG, 2X/DAY
     Route: 048
     Dates: start: 20120606
  2. COUMADIN [Concomitant]
     Dosage: UNK

REACTIONS (2)
  - HEADACHE [None]
  - VISION BLURRED [None]
